FAERS Safety Report 26044793 (Version 1)
Quarter: 2025Q4

REPORT INFORMATION
  Report Type: Other
  Country: GB (occurrence: GB)
  Receive Date: 20251114
  Receipt Date: 20251114
  Transmission Date: 20260117
  Serious: Yes (Life-Threatening, Other)
  Sender: ASPEN
  Company Number: None

PATIENT

DRUGS (9)
  1. DEXAMETHASONE [Suspect]
     Active Substance: DEXAMETHASONE
     Indication: Anaesthesia
     Dosage: 6.6 MILLIGRAM
     Route: 042
     Dates: start: 20250923, end: 20250923
  2. REMIFENTANIL HYDROCHLORIDE [Suspect]
     Active Substance: REMIFENTANIL HYDROCHLORIDE
     Indication: Anaesthesia
     Dosage: UNK
     Route: 065
     Dates: start: 20250923, end: 20250923
  3. AMOXICILLIN\CLAVULANATE POTASSIUM [Suspect]
     Active Substance: AMOXICILLIN\CLAVULANATE POTASSIUM
     Indication: Surgery
     Dosage: 1.2 GRAMSIV (INTRAVENOUS)
     Route: 042
     Dates: start: 20250923, end: 20250923
  4. ONDANSETRON [Suspect]
     Active Substance: ONDANSETRON
     Indication: Anaesthesia
     Dosage: 4 MILLIGRAM
     Route: 042
     Dates: start: 20250923, end: 20250923
  5. TRANEXAMIC ACID [Suspect]
     Active Substance: TRANEXAMIC ACID
     Indication: Surgery
     Dosage: 1 GRAM
     Route: 042
     Dates: start: 20250923, end: 20250923
  6. BETADINE [Suspect]
     Active Substance: POVIDONE-IODINE
     Indication: Mastectomy
     Dosage: UNK
     Route: 065
     Dates: start: 20250923, end: 20250923
  7. BETADINE [Suspect]
     Active Substance: POVIDONE-IODINE
     Indication: Preoperative care
  8. BETADINE [Suspect]
     Active Substance: POVIDONE-IODINE
     Indication: Axillary lymphadenectomy
  9. PROPOFOL [Concomitant]
     Active Substance: PROPOFOL
     Indication: Anaesthesia
     Dosage: UNK
     Route: 065

REACTIONS (9)
  - Sinus tachycardia [Recovered/Resolved]
  - Hypotension [Recovered/Resolved]
  - Piloerection [Recovered/Resolved]
  - Cardiac arrest [Recovered/Resolved]
  - Generalised oedema [Recovered/Resolved]
  - Anaphylactic reaction [Unknown]
  - Pulseless electrical activity [Unknown]
  - PCO2 decreased [Unknown]
  - Pulse abnormal [Unknown]

NARRATIVE: CASE EVENT DATE: 20250923
